FAERS Safety Report 5068143-X (Version None)
Quarter: 2006Q3

REPORT INFORMATION
  Report Type: 
  Country: None (occurrence: None)
  Receive Date: 20060802
  Receipt Date: 20060612
  Transmission Date: 20061208
  Serious: Yes (Congenital Anomaly, Other)
  Sender: FDA-Public Use
  Company Number: US-BRISTOL-MYERS SQUIBB COMPANY-13409891

PATIENT
  Age: 26 Year
  Sex: Female

DRUGS (8)
  1. REYATAZ [Suspect]
     Indication: HIV INFECTION
     Dosage: ONGOING PRIOR TO CONCEPTION TO 7+ WEEKS. RESTART UNKNOWN DATE TO 10+ WEEKS.
     Route: 048
     Dates: end: 20060513
  2. EPIVIR [Suspect]
     Indication: HIV INFECTION
     Dosage: ONGOING PRIOR TO CONCEPTION TO 7+ WEEKS. RESTART UNKNOWN DATE TO 10+ WEEKS.
     Route: 048
     Dates: end: 20060513
  3. VIREAD [Suspect]
     Indication: HIV INFECTION
     Dosage: ONGOING PRIOR TO CONCEPTION TO 7+ WEEKS. RESTART UNKNOWN DATE TO 10+ WEEKS.
     Route: 048
     Dates: end: 20060513
  4. ALCOHOL [Concomitant]
  5. XANAX [Concomitant]
  6. ZOLOFT [Concomitant]
  7. PERCOCET [Concomitant]
  8. IMIPRAMINE [Concomitant]

REACTIONS (6)
  - ABORTION INDUCED [None]
  - CONGENITAL GASTRIC ANOMALY [None]
  - HYDROCEPHALUS [None]
  - PREGNANCY [None]
  - TALIPES [None]
  - UMBILICAL CORD ABNORMALITY [None]
